FAERS Safety Report 4325797-0 (Version None)
Quarter: 2004Q1

REPORT INFORMATION
  Report Type: 
  Country: None (occurrence: None)
  Receive Date: 20040329
  Receipt Date: 20031215
  Transmission Date: 20041129
  Serious: Yes (Death, Life-Threatening, Hospitalization)
  Sender: FDA-Public Use
  Company Number: IE-ROCHE-354193

PATIENT
  Age: 64 Year
  Sex: Female
  Weight: 46 kg

DRUGS (1)
  1. XELODA [Suspect]
     Route: 048
     Dates: start: 20031110, end: 20031117

REACTIONS (19)
  - ALOPECIA [None]
  - BRONCHOPNEUMONIA [None]
  - COLON CANCER STAGE IV [None]
  - DYSPHASIA [None]
  - ENZYME ABNORMALITY [None]
  - FEBRILE NEUTROPENIA [None]
  - HAEMATURIA [None]
  - MUCOSAL INFLAMMATION [None]
  - NAUSEA [None]
  - NEUTROPENIA [None]
  - PALMAR-PLANTAR ERYTHRODYSAESTHESIA SYNDROME [None]
  - PANCYTOPENIA [None]
  - PYREXIA [None]
  - RENAL FAILURE ACUTE [None]
  - RESPIRATORY FAILURE [None]
  - SEPSIS [None]
  - SKIN DESQUAMATION [None]
  - SKIN MACERATION [None]
  - THROMBOCYTOPENIA [None]
